FAERS Safety Report 7004943-4 (Version None)
Quarter: 2010Q3

REPORT INFORMATION
  Report Type: 
  Country: None (occurrence: None)
  Receive Date: 20100917
  Receipt Date: 20100831
  Transmission Date: 20110219
  Serious: Yes (Other)
  Sender: FDA-Public Use
  Company Number: FK201000375

PATIENT
  Sex: Male

DRUGS (4)
  1. CISPLATIN [Suspect]
     Indication: NEUROBLASTOMA
     Dosage: (1000 MG/M2)
  2. ETOPOSIDE [Suspect]
     Indication: NEUROBLASTOMA
     Dosage: (640 MG/M2, OVER 3 DAYS)
  3. MELPHALAN (MELPHALAN) (MELPHALEN) [Concomitant]
  4. GRANULOCYTE COLONY STIMULATING FACTOR (GRANULOCYTE COLONY STIMULATING [Concomitant]

REACTIONS (2)
  - RENAL FAILURE [None]
  - WHITE BLOOD CELL COUNT DECREASED [None]
